FAERS Safety Report 17011812 (Version 1)
Quarter: 2019Q4

REPORT INFORMATION
  Report Type: Spontaneous
  Country: RU (occurrence: RU)
  Receive Date: 20191108
  Receipt Date: 20191108
  Transmission Date: 20200122
  Serious: Yes (Life-Threatening)
  Sender: FDA-Public Use
  Company Number: RU-EISAI MEDICAL RESEARCH-EC-2019-064968

PATIENT
  Sex: Male

DRUGS (1)
  1. LENVIMA [Suspect]
     Active Substance: LENVATINIB
     Indication: RENAL CELL CARCINOMA
     Route: 048
     Dates: start: 20190926, end: 2019

REACTIONS (1)
  - Intestinal perforation [Recovered/Resolved with Sequelae]

NARRATIVE: CASE EVENT DATE: 20191030
